FAERS Safety Report 5740295-5 (Version None)
Quarter: 2008Q2

REPORT INFORMATION
  Report Type: 
  Country: None (occurrence: None)
  Receive Date: 20080516
  Receipt Date: 20080508
  Transmission Date: 20081010
  Serious: Yes (Death)
  Sender: FDA-Public Use
  Company Number: JP-BAYER-200710865BYL

PATIENT
  Age: 75 Year
  Sex: Male
  Weight: 60 kg

DRUGS (7)
  1. AVELOX [Suspect]
     Indication: PNEUMONIA
     Dosage: TOTAL DAILY DOSE: 400 MG  UNIT DOSE: 400 MG
     Route: 048
     Dates: start: 20071115, end: 20071115
  2. MEROPEN [Suspect]
     Indication: PNEUMONIA
     Dosage: TOTAL DAILY DOSE: 0.5 G  UNIT DOSE: 0.5 G
     Route: 040
     Dates: start: 20071116, end: 20071116
  3. SEPAMIT-R [Suspect]
     Indication: HYPERTENSION
     Dosage: TOTAL DAILY DOSE: 40 MG  UNIT DOSE: 10 MG
     Route: 048
     Dates: start: 20071115, end: 20071116
  4. NICARPINE [Concomitant]
     Indication: HYPERTENSION
     Route: 065
     Dates: start: 20071113
  5. NITROGLYCERIN [Concomitant]
     Indication: HYPERTENSION
     Route: 041
     Dates: start: 20071109
  6. FAMOTIDINE [Concomitant]
     Indication: PROPHYLAXIS AGAINST GASTROINTESTINAL ULCER
     Route: 048
     Dates: start: 20071113
  7. HERBESSER [Concomitant]
     Indication: HYPERTENSION
     Route: 042
     Dates: start: 20071109

REACTIONS (2)
  - HEPATIC FAILURE [None]
  - RENAL FAILURE [None]
